FAERS Safety Report 19350458 (Version 1)
Quarter: 2021Q2

REPORT INFORMATION
  Report Type: Spontaneous
  Country: US (occurrence: US)
  Receive Date: 20210531
  Receipt Date: 20210531
  Transmission Date: 20210717
  Serious: Yes (Hospitalization)
  Sender: FDA-Public Use
  Company Number: US-CADILA HEALTHCARE LIMITED-US-ZYDUS-066158

PATIENT

DRUGS (1)
  1. AMITRIPTYLINE [Suspect]
     Active Substance: AMITRIPTYLINE
     Indication: PRODUCT USED FOR UNKNOWN INDICATION
     Dosage: UNK
     Route: 065

REACTIONS (9)
  - Toxicity to various agents [Unknown]
  - Blood lactic acid increased [Unknown]
  - Ejection fraction decreased [Recovering/Resolving]
  - Generalised tonic-clonic seizure [Unknown]
  - Overdose [Unknown]
  - Hypotension [Unknown]
  - Sinus tachycardia [Unknown]
  - Electrocardiogram QRS complex prolonged [Recovering/Resolving]
  - Electrocardiogram QT prolonged [Recovering/Resolving]
